FAERS Safety Report 5238550-0 (Version None)
Quarter: 2007Q1

REPORT INFORMATION
  Report Type: 
  Country: None (occurrence: None)
  Receive Date: 20070215
  Receipt Date: 20070208
  Transmission Date: 20070707
  Serious: Yes (Other)
  Sender: FDA-Public Use
  Company Number: GB-GLAXOSMITHKLINE-B0458472A

PATIENT
  Age: 85 Year
  Sex: Male
  Weight: 60 kg

DRUGS (3)
  1. DUTASTERIDE [Suspect]
     Indication: PROSTATE EXAMINATION ABNORMAL
     Dosage: 500UG UNKNOWN
     Route: 048
     Dates: start: 20060101
  2. ASPIRIN [Concomitant]
     Indication: TRANSIENT ISCHAEMIC ATTACK
     Route: 065
     Dates: start: 20020101
  3. XALATAN [Concomitant]
     Indication: GLAUCOMA
     Route: 047
     Dates: start: 19990101

REACTIONS (3)
  - DYSPNOEA [None]
  - FATIGUE [None]
  - VISION BLURRED [None]
